FAERS Safety Report 25615302 (Version 2)
Quarter: 2025Q4

REPORT INFORMATION
  Report Type: Report from Study
  Country: US (occurrence: US)
  Receive Date: 20250729
  Receipt Date: 20251016
  Transmission Date: 20260118
  Serious: Yes (Other)
  Sender: ALEXION PHARMACEUTICALS
  Company Number: US-AstraZeneca-CH-00917880A

PATIENT
  Age: 46 Year
  Sex: Female
  Weight: 55.5 kg

DRUGS (1)
  1. DURVALUMAB [Suspect]
     Active Substance: DURVALUMAB
     Dosage: 1500 MILLIGRAM EVERY 28 DAYS

REACTIONS (2)
  - Adenocarcinoma gastric [Unknown]
  - Product use in unapproved indication [Unknown]
